FAERS Safety Report 7015352-6 (Version None)
Quarter: 2010Q3

REPORT INFORMATION
  Report Type: 
  Country: None (occurrence: None)
  Receive Date: 20100924
  Receipt Date: 20100924
  Transmission Date: 20110219
  Serious: Yes (Hospitalization)
  Sender: FDA-Public Use
  Company Number: None

PATIENT
  Age: 88 Year
  Sex: Female

DRUGS (2)
  1. ALTEPLASE 5MG [Suspect]
     Dosage: 5 MG ONCE IV
     Route: 042
     Dates: start: 20091219, end: 20091219
  2. ALTEPLASE 46 MG [Suspect]
     Dosage: 46 MG ONCE IV
     Route: 042

REACTIONS (7)
  - APHASIA [None]
  - HAEMATOCRIT DECREASED [None]
  - HAEMOGLOBIN DECREASED [None]
  - HEART RATE DECREASED [None]
  - HEMIPARESIS [None]
  - PLATELET COUNT INCREASED [None]
  - WHITE BLOOD CELL COUNT INCREASED [None]
